FAERS Safety Report 23877048 (Version 3)
Quarter: 2024Q3

REPORT INFORMATION
  Report Type: Spontaneous
  Country: US (occurrence: US)
  Receive Date: 20240521
  Receipt Date: 20240715
  Transmission Date: 20241016
  Serious: No
  Sender: BIOGEN
  Company Number: US-BIOGEN-2023BI01196837

PATIENT
  Sex: Female

DRUGS (1)
  1. TYSABRI [Suspect]
     Active Substance: NATALIZUMAB
     Indication: Multiple sclerosis
     Route: 050
     Dates: start: 20151022

REACTIONS (5)
  - Confusional state [Unknown]
  - Communication disorder [Unknown]
  - Stress [Unknown]
  - Frustration tolerance decreased [Unknown]
  - Multiple sclerosis [Unknown]
